FAERS Safety Report 9007564 (Version 1)
Quarter: 2013Q1

REPORT INFORMATION
  Report Type: Spontaneous
  Country: US (occurrence: US)
  Receive Date: 20130111
  Receipt Date: 20130111
  Transmission Date: 20140127
  Serious: Yes (Disabling)
  Sender: FDA-Public Use
  Company Number: US-009507513-0907USA03749

PATIENT
  Age: 17 Year
  Sex: Female
  Weight: 45.36 kg

DRUGS (1)
  1. SINGULAIR [Suspect]
     Indication: ASTHMA
     Route: 048
     Dates: start: 20030501, end: 20051201

REACTIONS (3)
  - Pain in extremity [Unknown]
  - Hypoaesthesia [Unknown]
  - Paraesthesia [Unknown]
